FAERS Safety Report 19253354 (Version 1)
Quarter: 2021Q2

REPORT INFORMATION
  Report Type: Spontaneous
  Country: US (occurrence: US)
  Receive Date: 20210513
  Receipt Date: 20210513
  Transmission Date: 20210717
  Serious: No
  Sender: FDA-Public Use
  Company Number: US-PFIZER INC-2021483551

PATIENT
  Age: 82 Year
  Sex: Male
  Weight: 66.68 kg

DRUGS (6)
  1. DONEPEZIL HCL [Suspect]
     Active Substance: DONEPEZIL HYDROCHLORIDE
     Indication: MENTAL STATUS CHANGES
     Dosage: 5 MG
  2. ESCITALOPRAM [Suspect]
     Active Substance: ESCITALOPRAM OXALATE
     Indication: MENTAL STATUS CHANGES
     Dosage: 10 MG
  3. SERTRALINE HCL [Suspect]
     Active Substance: SERTRALINE HYDROCHLORIDE
     Indication: MENTAL STATUS CHANGES
     Dosage: 50 MG
  4. ONDANSETRON HCL [Suspect]
     Active Substance: ONDANSETRON HYDROCHLORIDE
     Indication: MENTAL STATUS CHANGES
     Dosage: 4 MG
  5. QUETIAPINE FUMARATE. [Suspect]
     Active Substance: QUETIAPINE FUMARATE
     Indication: MENTAL STATUS CHANGES
     Dosage: 25 MG
  6. TRAZODONE [Suspect]
     Active Substance: TRAZODONE HYDROCHLORIDE
     Indication: MENTAL STATUS CHANGES
     Dosage: 50 MG

REACTIONS (1)
  - Drug ineffective [Unknown]
